FAERS Safety Report 8425226-1 (Version None)
Quarter: 2012Q2

REPORT INFORMATION
  Report Type: 
  Country: None (occurrence: None)
  Receive Date: 20120529
  Receipt Date: 20120522
  Transmission Date: 20120825
  Serious: Yes (Other)
  Sender: FDA-Public Use
  Company Number: 2012031443

PATIENT
  Age: 54 Year
  Sex: Male
  Weight: 95.2554 kg

DRUGS (6)
  1. PRILOSEC [Concomitant]
  2. PAXIL [Concomitant]
  3. HYDROCHLOROTHIAZIDE [Concomitant]
  4. BERINERT [Suspect]
     Indication: HEREDITARY ANGIOEDEMA
     Dosage: (2000 UNITS PRN AT A RATE OF 4 ML PER MINUTE INTRAVENOUS (NOT OTHERWISE SPECIFIED))
     Route: 042
  5. SODIUM CHLORIDE 0.9% [Concomitant]
  6. ATENOLOL [Concomitant]

REACTIONS (2)
  - ANGIOEDEMA [None]
  - IMPAIRED WORK ABILITY [None]
